FAERS Safety Report 14213160 (Version 5)
Quarter: 2018Q1

REPORT INFORMATION
  Report Type: Spontaneous
  Country: JP (occurrence: JP)
  Receive Date: 20171122
  Receipt Date: 20180319
  Transmission Date: 20180508
  Serious: Yes (Life-Threatening, Hospitalization, Other)
  Sender: FDA-Public Use
  Company Number: JP-ROCHE-2025563

PATIENT
  Age: 70 Year
  Sex: Female
  Weight: 62 kg

DRUGS (3)
  1. PACLITAXEL. [Suspect]
     Active Substance: PACLITAXEL
     Indication: BREAST CANCER
     Dosage: DOSAGE IS UNCERTAIN.
     Route: 041
     Dates: start: 20150129, end: 20150430
  2. HERCEPTIN [Suspect]
     Active Substance: TRASTUZUMAB
     Dosage: DOSE INTERVAL UNCERTAINTY?TREATMENT CYCLE OF THIS MEDICINE NUMBER: 3 OR MORE
     Route: 041
     Dates: start: 20150205, end: 20150430
  3. HERCEPTIN [Suspect]
     Active Substance: TRASTUZUMAB
     Indication: BREAST CANCER
     Route: 041
     Dates: start: 20150128, end: 20150128

REACTIONS (6)
  - Duodenal ulcer haemorrhage [Recovered/Resolved]
  - Metabolic acidosis [Unknown]
  - Hypothermia [Unknown]
  - Coagulopathy [Unknown]
  - Shock haemorrhagic [Unknown]
  - Interstitial lung disease [Recovered/Resolved]

NARRATIVE: CASE EVENT DATE: 20150507
